FAERS Safety Report 6167185-0 (Version None)
Quarter: 2009Q2

REPORT INFORMATION
  Report Type: 
  Country: None (occurrence: None)
  Receive Date: 20090424
  Receipt Date: 20090415
  Transmission Date: 20091009
  Serious: Yes (Hospitalization)
  Sender: FDA-Public Use
  Company Number: GB-PFIZER INC-2007058601

PATIENT

DRUGS (1)
  1. CELEBREX [Suspect]
     Indication: BACK PAIN
     Dosage: 100 MG, UNK
     Route: 048
     Dates: start: 20040901, end: 20050601

REACTIONS (3)
  - CONGESTIVE CARDIOMYOPATHY [None]
  - INSOMNIA [None]
  - VIRAL INFECTION [None]
